FAERS Safety Report 9242027 (Version 2)
Quarter: 2013Q2

REPORT INFORMATION
  Report Type: Spontaneous
  Country: US (occurrence: US)
  Receive Date: 20130419
  Receipt Date: 20130510
  Transmission Date: 20140414
  Serious: No
  Sender: FDA-Public Use
  Company Number: US-PFIZER INC-2013119741

PATIENT
  Age: 58 Year
  Sex: Female
  Weight: 57.14 kg

DRUGS (1)
  1. LEVOXYL [Suspect]
     Indication: HYPOTHYROIDISM
     Dosage: 100 UG, 1X/DAY
     Route: 048
     Dates: start: 1996

REACTIONS (5)
  - Product odour abnormal [Unknown]
  - Product taste abnormal [Unknown]
  - Extrasystoles [Unknown]
  - Urticaria [Unknown]
  - Rash [Unknown]
